FAERS Safety Report 4400940-3 (Version None)
Quarter: 2004Q3

REPORT INFORMATION
  Report Type: 
  Country: None (occurrence: None)
  Receive Date: 20040907
  Receipt Date: 20030819
  Transmission Date: 20050211
  Serious: No
  Sender: FDA-Public Use
  Company Number: US-BRISTOL-MYERS SQUIBB COMPANY-12359709

PATIENT
  Age: 57 Year
  Sex: Male

DRUGS (14)
  1. COUMADIN [Suspect]
     Route: 048
     Dates: start: 20030301
  2. COUMADIN [Suspect]
     Route: 048
     Dates: start: 20030301
  3. VIOXX [Concomitant]
  4. KLONOPIN [Concomitant]
  5. AMBIEN [Concomitant]
  6. LEXAPRO [Concomitant]
  7. PROTONIX [Concomitant]
  8. LASIX [Concomitant]
  9. COZAAR [Concomitant]
  10. ADVAIR DISKUS 100/50 [Concomitant]
  11. NEURONTIN [Concomitant]
  12. LIPITOR [Concomitant]
  13. MAG-OX [Concomitant]
  14. ATENOLOL [Concomitant]

REACTIONS (2)
  - INTERNATIONAL NORMALISED RATIO DECREASED [None]
  - PROTHROMBIN TIME ABNORMAL [None]
